FAERS Safety Report 7480304-9 (Version None)
Quarter: 2011Q2

REPORT INFORMATION
  Report Type: 
  Country: None (occurrence: None)
  Receive Date: 20110512
  Receipt Date: 20110512
  Transmission Date: 20111010
  Serious: Yes (Other)
  Sender: FDA-Public Use
  Company Number: None

PATIENT
  Age: 34 Year
  Sex: Male
  Weight: 73.5 kg

DRUGS (5)
  1. MULTIHANCE [Suspect]
     Dosage: GADOBENATE (MULTIHANCE) 10 ML HAND INJECTION IV
     Dates: start: 20100429
  2. MULTI-VITAMINS [Concomitant]
  3. PREDNISONE TAB [Concomitant]
  4. CALCIUM CARBONATE/VITAMIN D [Concomitant]
  5. BENADRYL [Concomitant]

REACTIONS (4)
  - FLUSHING [None]
  - URTICARIA [None]
  - DYSPNOEA [None]
  - THROAT IRRITATION [None]
